FAERS Safety Report 7337897-1 (Version None)
Quarter: 2011Q1

REPORT INFORMATION
  Report Type: 
  Country: None (occurrence: None)
  Receive Date: 20110308
  Receipt Date: 20110228
  Transmission Date: 20110831
  Serious: Yes (Other)
  Sender: FDA-Public Use
  Company Number: KR-ROCHE-762568

PATIENT

DRUGS (4)
  1. SUNITINIB [Suspect]
     Indication: GASTRIC CANCER
     Route: 065
  2. OXALIPLATIN [Suspect]
     Indication: GASTRIC CANCER
     Route: 065
  3. CISPLATIN [Suspect]
     Indication: GASTRIC CANCER
     Route: 065
  4. CAPECITABINE [Suspect]
     Indication: GASTRIC CANCER
     Route: 065

REACTIONS (7)
  - HYPOPHOSPHATAEMIA [None]
  - THROMBOCYTOPENIA [None]
  - LEUKOPENIA [None]
  - ANAEMIA [None]
  - NEUTROPENIA [None]
  - HYPERGLYCAEMIA [None]
  - FEBRILE NEUTROPENIA [None]
